FAERS Safety Report 6207633-0 (Version None)
Quarter: 2009Q2

REPORT INFORMATION
  Report Type: 
  Country: None (occurrence: None)
  Receive Date: 20090528
  Receipt Date: 20090519
  Transmission Date: 20091009
  Serious: Yes (Other)
  Sender: FDA-Public Use
  Company Number: FR-ABBOTT-09P-056-0574541-00

PATIENT
  Age: 41 Year
  Sex: Female
  Weight: 95 kg

DRUGS (1)
  1. DEPAKOTE [Suspect]
     Indication: BIPOLAR DISORDER
     Route: 048
     Dates: start: 20070701

REACTIONS (2)
  - HEPATIC STEATOSIS [None]
  - HEPATOMEGALY [None]
